FAERS Safety Report 15957898 (Version 1)
Quarter: 2019Q1

REPORT INFORMATION
  Report Type: Spontaneous
  Country: US (occurrence: US)
  Receive Date: 20190213
  Receipt Date: 20190213
  Transmission Date: 20190417
  Serious: Yes (Hospitalization)
  Sender: FDA-Public Use
  Company Number: US-NEXGEN PHARMA, INC.-2062628

PATIENT
  Age: 24 Year
  Sex: Male

DRUGS (1)
  1. CHENODAL [Suspect]
     Active Substance: CHENODIOL
     Indication: BODY FAT DISORDER
     Route: 048
     Dates: start: 20141220

REACTIONS (2)
  - Hospitalisation [None]
  - Hospitalisation [Recovered/Resolved]
